FAERS Safety Report 21578732 (Version 5)
Quarter: 2023Q2

REPORT INFORMATION
  Report Type: Spontaneous
  Country: CA (occurrence: CA)
  Receive Date: 20221110
  Receipt Date: 20230418
  Transmission Date: 20230721
  Serious: Yes (Death, Hospitalization, Other)
  Sender: FDA-Public Use
  Company Number: CA-002147023-NVSC2022CA253151

PATIENT
  Age: 74 Year
  Sex: Male

DRUGS (24)
  1. CYCLOSPORINE [Suspect]
     Active Substance: CYCLOSPORINE
     Indication: Pure white cell aplasia
     Dosage: 50 MG
     Route: 065
  2. CYCLOSPORINE [Suspect]
     Active Substance: CYCLOSPORINE
     Dosage: 100 MG
     Route: 065
  3. CYCLOSPORINE [Suspect]
     Active Substance: CYCLOSPORINE
     Dosage: 75 MG
     Route: 065
  4. CYCLOSPORINE [Suspect]
     Active Substance: CYCLOSPORINE
     Dosage: 75 MG
     Route: 065
  5. CYCLOSPORINE [Suspect]
     Active Substance: CYCLOSPORINE
     Indication: Pure white cell aplasia
     Dosage: 50 MG, BID
     Route: 065
  6. CYCLOSPORINE [Suspect]
     Active Substance: CYCLOSPORINE
     Indication: Febrile neutropenia
     Dosage: 100 MG, BID
     Route: 065
  7. DANAZOL [Suspect]
     Active Substance: DANAZOL
     Indication: Pure white cell aplasia
     Dosage: 200 MG, BID (2 EVERY 1 DAYS)
     Route: 065
  8. DANAZOL [Suspect]
     Active Substance: DANAZOL
     Indication: Cytopenia
     Dosage: UNK
     Route: 065
  9. DANAZOL [Suspect]
     Active Substance: DANAZOL
     Dosage: 200 MG, BID (2 EVERY 1 DAYS)
     Route: 065
  10. DAPSONE [Suspect]
     Active Substance: DAPSONE
     Indication: Pure white cell aplasia
     Dosage: UNK
     Route: 065
  11. DAPSONE [Suspect]
     Active Substance: DAPSONE
     Indication: Cytopenia
  12. DAPSONE [Suspect]
     Active Substance: DAPSONE
     Indication: Pure white cell aplasia
     Dosage: 100 MG, QD (1 EVERY 1 DAYS)
     Route: 065
  13. DAPSONE [Suspect]
     Active Substance: DAPSONE
     Indication: Cytopenia
  14. PREDNISOLONE [Suspect]
     Active Substance: PREDNISOLONE
     Indication: Pure white cell aplasia
     Dosage: UNK
     Route: 065
  15. PREDNISOLONE [Suspect]
     Active Substance: PREDNISOLONE
     Dosage: 1 MG/KG
     Route: 065
  16. FILGRASTIM [Suspect]
     Active Substance: FILGRASTIM
     Indication: Pure white cell aplasia
     Dosage: 300 UG
     Route: 065
  17. FILGRASTIM [Suspect]
     Active Substance: FILGRASTIM
     Indication: Febrile neutropenia
     Dosage: 300 UG
     Route: 058
  18. FILGRASTIM [Suspect]
     Active Substance: FILGRASTIM
     Dosage: UNK
     Route: 065
  19. HUMAN IMMUNOGLOBULIN G [Suspect]
     Active Substance: HUMAN IMMUNOGLOBULIN G
     Indication: Pure white cell aplasia
     Dosage: UNK
     Route: 065
  20. HUMAN IMMUNOGLOBULIN G [Suspect]
     Active Substance: HUMAN IMMUNOGLOBULIN G
     Indication: Febrile neutropenia
     Dosage: 1 G
     Route: 065
  21. HUMAN IMMUNOGLOBULIN G [Suspect]
     Active Substance: HUMAN IMMUNOGLOBULIN G
     Indication: Pure white cell aplasia
     Dosage: 1 G
     Route: 042
  22. HUMAN IMMUNOGLOBULIN G [Suspect]
     Active Substance: HUMAN IMMUNOGLOBULIN G
     Indication: Febrile neutropenia
  23. METFORMIN [Concomitant]
     Active Substance: METFORMIN HYDROCHLORIDE
     Indication: Type 2 diabetes mellitus
     Dosage: UNK
     Route: 065
  24. ATORVASTATIN [Concomitant]
     Active Substance: ATORVASTATIN
     Indication: Dyslipidaemia
     Dosage: UNK
     Route: 065

REACTIONS (7)
  - Renal failure [Fatal]
  - Acute kidney injury [Fatal]
  - Multiple organ dysfunction syndrome [Fatal]
  - Sepsis [Fatal]
  - Thrombocytopenia [Fatal]
  - Drug ineffective for unapproved indication [Fatal]
  - Drug ineffective [Fatal]
